FAERS Safety Report 23405543 (Version 1)
Quarter: 2024Q1

REPORT INFORMATION
  Report Type: Spontaneous
  Country: US (occurrence: US)
  Receive Date: 20240116
  Receipt Date: 20240116
  Transmission Date: 20240409
  Serious: No
  Sender: FDA-Public Use
  Company Number: US-009507513-2401USA004590

PATIENT
  Sex: Female

DRUGS (1)
  1. BELSOMRA [Suspect]
     Active Substance: SUVOREXANT
     Indication: Insomnia
     Dosage: 10 MILLIGRAM, NIGHTLY
     Route: 048
     Dates: start: 202312

REACTIONS (2)
  - Drug ineffective [Unknown]
  - Hypervigilance [Unknown]

NARRATIVE: CASE EVENT DATE: 20231201
